FAERS Safety Report 10976079 (Version 1)
Quarter: 2015Q1

REPORT INFORMATION
  Report Type: Spontaneous
  Country: US (occurrence: None)
  Receive Date: 20150226
  Receipt Date: 20150226
  Transmission Date: 20150721
  Serious: No
  Sender: FDA-Public Use
  Company Number: TPA2010A03950

PATIENT
  Age: 87 Year
  Sex: Male
  Weight: 60.78 kg

DRUGS (13)
  1. MEGESTROL (MEGESTROL) [Suspect]
     Active Substance: MEGESTROL
     Indication: DECREASED APPETITE
     Route: 048
     Dates: start: 20100701, end: 20100706
  2. BABY ASPIRIN (ACETYLSALICYLIC ACID) [Concomitant]
     Active Substance: ASPIRIN
  3. ASPIRIN, EFFERVESCENT (ACETYLSALICYLIC ACID) [Concomitant]
  4. VITAMIN D (ERGOCALCIFER0L) [Concomitant]
  5. METOPROLOL SUCCINATE ER  (METOPROLOL SUCCINATE) [Concomitant]
  6. VITAMIN B12 [Concomitant]
     Active Substance: CYANOCOBALAMIN
  7. RAMIPRIL. [Concomitant]
     Active Substance: RAMIPRIL
  8. COLCHICINE. [Concomitant]
     Active Substance: COLCHICINE
  9. AVODART [Concomitant]
     Active Substance: DUTASTERIDE
  10. LEVOTHYROXINE [Concomitant]
     Active Substance: LEVOTHYROXINE
  11. PROCRIT (ERYTHROPOIETIN) [Concomitant]
  12. NEXIUM [Concomitant]
     Active Substance: ESOMEPRAZOLE MAGNESIUM
  13. ULORIC [Suspect]
     Active Substance: FEBUXOSTAT
     Indication: GOUT
     Route: 048
     Dates: start: 20100119, end: 2010

REACTIONS (3)
  - Rash [None]
  - Hypersensitivity [None]
  - Pruritus [None]

NARRATIVE: CASE EVENT DATE: 20100701
